FAERS Safety Report 18087632 (Version 1)
Quarter: 2020Q3

REPORT INFORMATION
  Report Type: Spontaneous
  Country: US (occurrence: US)
  Receive Date: 20200729
  Receipt Date: 20200729
  Transmission Date: 20201103
  Serious: Yes (Other)
  Sender: FDA-Public Use
  Company Number: None

PATIENT
  Age: 88 Year
  Sex: Male
  Weight: 78.3 kg

DRUGS (6)
  1. OXYBUTNIN CL ER [Concomitant]
  2. LISINOPRIL. [Concomitant]
     Active Substance: LISINOPRIL
  3. GLIMEPIRIDE. [Concomitant]
     Active Substance: GLIMEPIRIDE
  4. CENTRUM SILVER MULTIVITAMIN [Concomitant]
  5. METFORMIN HCLXR 750MG [Suspect]
     Active Substance: METFORMIN HYDROCHLORIDE
     Indication: DIABETES MELLITUS
     Dosage: ?          QUANTITY:2 TABLET(S);?
     Route: 048
     Dates: start: 20190329, end: 20200528
  6. AVORVASTATIN [Concomitant]

REACTIONS (3)
  - Recalled product administered [None]
  - Vomiting [None]
  - Weight decreased [None]

NARRATIVE: CASE EVENT DATE: 20190717
